FAERS Safety Report 5249358-4 (Version None)
Quarter: 2007Q1

REPORT INFORMATION
  Report Type: 
  Country: None (occurrence: None)
  Receive Date: 20070228
  Receipt Date: 20061024
  Transmission Date: 20070707
  Serious: No
  Sender: FDA-Public Use
  Company Number: US-GLAXOSMITHKLINE-A0617487A

PATIENT
  Sex: Female

DRUGS (6)
  1. VALTREX [Suspect]
     Dosage: 1000MG PER DAY
     Route: 048
  2. NORVASC [Concomitant]
  3. OMEPRAZOLE [Concomitant]
  4. ZOCOR [Concomitant]
  5. CENTRUM SILVER [Concomitant]
  6. CALCIUM [Concomitant]

REACTIONS (2)
  - DRUG INEFFECTIVE [None]
  - HERPES SIMPLEX [None]
